FAERS Safety Report 16545538 (Version 3)
Quarter: 2019Q3

REPORT INFORMATION
  Report Type: Spontaneous
  Country: AT (occurrence: AT)
  Receive Date: 20190709
  Receipt Date: 20190905
  Transmission Date: 20191004
  Serious: Yes (Hospitalization)
  Sender: FDA-Public Use
  Company Number: AT-AMGEN-AUTNI2018116083

PATIENT
  Age: 61 Year
  Sex: Female
  Weight: 55 kg

DRUGS (21)
  1. TRASTUZUMAB. [Suspect]
     Active Substance: TRASTUZUMAB
     Indication: HER-2 POSITIVE BREAST CANCER
     Dosage: 440 MILLIGRAM, Q3WK
     Route: 042
     Dates: start: 20180719
  2. HALDOL [Concomitant]
     Active Substance: HALOPERIDOL
     Indication: DYSPEPSIA
     Dosage: UNK, ONGOING = NOT CHECKED
     Route: 065
     Dates: start: 20180731, end: 20180815
  3. HYDAL [Concomitant]
     Active Substance: HYDROMORPHONE HYDROCHLORIDE
     Indication: DYSPEPSIA
  4. FENISTIL [Concomitant]
     Active Substance: DIMETHINDENE
     Dosage: ONGOING = CHECKED
     Route: 065
     Dates: start: 20180809, end: 20190704
  5. AROMASIN [Suspect]
     Active Substance: EXEMESTANE
     Indication: HER-2 POSITIVE BREAST CANCER
     Dosage: 25 MILLIGRAM, QD (MOST RECENT DOSE: 07/MAY/2019)
     Route: 048
     Dates: start: 20180719
  6. DUROTIV [Concomitant]
     Active Substance: ESOMEPRAZOLE
     Indication: DYSPEPSIA
     Dosage: UNK, ONGOING = CHECKED
     Route: 065
     Dates: start: 20180819
  7. MACROGOL [Concomitant]
     Active Substance: POLYETHYLENE GLYCOLS
     Dosage: UNK, ONGOING = NOT CHECKED
     Route: 065
     Dates: start: 20180719
  8. NOVALGIN (METAMIZOLE SODIUM) [Concomitant]
     Active Substance: METAMIZOLE SODIUM
     Dosage: UNK, ONGOING = CHECKED
     Route: 065
     Dates: start: 20180727
  9. HALDOL [Concomitant]
     Active Substance: HALOPERIDOL
     Indication: NAUSEA
     Dosage: UNK
     Route: 065
     Dates: start: 20180727, end: 20180815
  10. HALDOL [Concomitant]
     Active Substance: HALOPERIDOL
     Indication: DYSPEPSIA
     Dosage: ONGOING = NOT CHECKED
     Route: 065
     Dates: start: 20180731, end: 20180815
  11. IMODIUM [Concomitant]
     Active Substance: LOPERAMIDE HYDROCHLORIDE
     Indication: DIARRHOEA
     Dosage: UNK, ONGOING = CHECKED
     Route: 065
     Dates: start: 20180731
  12. HALDOL [Concomitant]
     Active Substance: HALOPERIDOL
     Indication: NAUSEA
     Dosage: UNK
     Route: 065
     Dates: start: 20180727, end: 20180815
  13. PERTUZUMAB. [Suspect]
     Active Substance: PERTUZUMAB
     Indication: HER-2 POSITIVE BREAST CANCER
     Dosage: 840 MILLIGRAM, Q3WK
     Route: 042
     Dates: start: 20180719
  14. NAVELBINE [Suspect]
     Active Substance: VINORELBINE TARTRATE
     Indication: HER-2 POSITIVE BREAST CANCER
     Dosage: 50 MILLIGRAM
     Route: 048
     Dates: start: 20180719, end: 20181130
  15. EUTHYROX [Concomitant]
     Active Substance: LEVOTHYROXINE SODIUM
     Dosage: UNK, ONGOING = CHECKED
     Route: 065
  16. DEXABENE [Concomitant]
     Dosage: UNK, ONGOING = CHECKED
     Route: 065
     Dates: start: 20180809
  17. ULSAL [Concomitant]
     Active Substance: RANITIDINE HYDROCHLORIDE
     Dosage: UNK, ONGOING = CHECKED
     Route: 065
     Dates: start: 20180809, end: 20190704
  18. DUROTIV [Concomitant]
     Active Substance: ESOMEPRAZOLE
     Indication: NAUSEA
     Dosage: UNK, ONGOING = CHECKED
     Route: 065
     Dates: start: 20180727
  19. HYDAL [Concomitant]
     Active Substance: HYDROMORPHONE HYDROCHLORIDE
     Indication: NAUSEA
     Dosage: ONGOING = CHECKED
     Route: 065
     Dates: start: 20180727
  20. ZOFRAN [Concomitant]
     Active Substance: ONDANSETRON HYDROCHLORIDE
     Dosage: UNK
     Route: 065
     Dates: start: 20180920
  21. ONDANSAN [Concomitant]
     Dosage: UNK, ONGOING = NOT CHECKED
     Route: 065
     Dates: start: 20180709, end: 20190206

REACTIONS (8)
  - Mucosal dryness [Recovering/Resolving]
  - Nausea [Recovered/Resolved]
  - Vertigo [Recovered/Resolved]
  - Infusion related reaction [Recovered/Resolved]
  - Dry skin [Recovering/Resolving]
  - Diarrhoea [Not Recovered/Not Resolved]
  - Dyspepsia [Recovered/Resolved]
  - Off label use [Unknown]

NARRATIVE: CASE EVENT DATE: 20180727
